FAERS Safety Report 6454804-4 (Version None)
Quarter: 2009Q4

REPORT INFORMATION
  Report Type: 
  Country: None (occurrence: None)
  Receive Date: 20091118
  Receipt Date: 20091026
  Transmission Date: 20100525
  Serious: Yes (Hospitalization)
  Sender: FDA-Public Use
  Company Number: IND1-HK-2009-0041

PATIENT

DRUGS (3)
  1. INDOMETHACIN [Suspect]
     Indication: GOUT
     Dosage: 150 MG (50 MG, 3 IN 1 D) ORAL; 75 MG (25 MG, 3 IN 1 D) ORAL
     Route: 048
  2. DICLOFENAC                (DICLOFENAC) [Concomitant]
  3. ACETAMINOPHEN [Concomitant]

REACTIONS (1)
  - GASTROINTESTINAL HAEMORRHAGE [None]
